FAERS Safety Report 12658220 (Version 4)
Quarter: 2016Q3

REPORT INFORMATION
  Report Type: Spontaneous
  Country: US (occurrence: US)
  Receive Date: 20160817
  Receipt Date: 20160928
  Transmission Date: 20161109
  Serious: Yes (Hospitalization, Other)
  Sender: FDA-Public Use
  Company Number: PHHY2016US111522

PATIENT
  Sex: Female
  Weight: 68.27 kg

DRUGS (3)
  1. ZOFRAN [Suspect]
     Active Substance: ONDANSETRON HYDROCHLORIDE
     Indication: VOMITING IN PREGNANCY
     Dosage: UNK
     Route: 048
  2. ZOFRAN [Suspect]
     Active Substance: ONDANSETRON HYDROCHLORIDE
     Dosage: 04 MG, UNK
     Route: 042
     Dates: start: 20070117, end: 20070117
  3. ZOFRAN [Suspect]
     Active Substance: ONDANSETRON HYDROCHLORIDE
     Indication: VOMITING IN PREGNANCY
     Dosage: 04 MG, UNK
     Route: 042
     Dates: start: 20070109, end: 20070110

REACTIONS (9)
  - Cervical dysplasia [Unknown]
  - Maternal exposure during pregnancy [Unknown]
  - Pain [Unknown]
  - Anhedonia [Unknown]
  - Product use issue [Unknown]
  - Emotional distress [Unknown]
  - Premature rupture of membranes [Unknown]
  - Dizziness [Unknown]
  - Anxiety [Unknown]
